FAERS Safety Report 5612156-3 (Version None)
Quarter: 2008Q1

REPORT INFORMATION
  Report Type: 
  Country: None (occurrence: None)
  Receive Date: 20080131
  Receipt Date: 20080131
  Transmission Date: 20080703
  Serious: Yes (Life-Threatening)
  Sender: FDA-Public Use
  Company Number: None

PATIENT
  Sex: Male
  Weight: 76.2043 kg

DRUGS (2)
  1. CRESTOR [Suspect]
     Indication: BLOOD CHOLESTEROL INCREASED
     Dosage: 5MG ONCE A DAY PO
     Route: 048
     Dates: start: 20070903, end: 20070914
  2. WARFARIN 2.5MG ZYDUS [Suspect]
     Indication: ATRIAL FIBRILLATION
     Dosage: 2.5MG ONCE A DAY PO
     Route: 048
     Dates: start: 20070518, end: 20080130

REACTIONS (1)
  - INTERNATIONAL NORMALISED RATIO INCREASED [None]
